FAERS Safety Report 19160537 (Version 1)
Quarter: 2021Q2

REPORT INFORMATION
  Report Type: Spontaneous
  Country: GB (occurrence: GB)
  Receive Date: 20210420
  Receipt Date: 20210420
  Transmission Date: 20210717
  Serious: Yes (Other)
  Sender: FDA-Public Use
  Company Number: GB-BRISTOL-MYERS SQUIBB COMPANY-BMS-2021-034757

PATIENT
  Age: 60 Year
  Sex: Female

DRUGS (2)
  1. DASATINIB. [Suspect]
     Active Substance: DASATINIB
     Dosage: 70 MILLIGRAM, QD
     Route: 065
  2. DASATINIB. [Suspect]
     Active Substance: DASATINIB
     Indication: CHRONIC MYELOID LEUKAEMIA
     Dosage: 100 MILLIGRAM, QD
     Route: 065
     Dates: start: 20190129, end: 20200630

REACTIONS (10)
  - Drug intolerance [Unknown]
  - Pleural effusion [Unknown]
  - Presyncope [Unknown]
  - Drug withdrawal syndrome [Unknown]
  - Muscle spasms [Unknown]
  - Dyspnoea [Unknown]
  - Pericardial effusion [Unknown]
  - Fatigue [Unknown]
  - Musculoskeletal pain [Unknown]
  - Pulmonary arterial pressure increased [Unknown]
